FAERS Safety Report 7365998-0 (Version None)
Quarter: 2011Q1

REPORT INFORMATION
  Report Type: 
  Country: None (occurrence: None)
  Receive Date: 20110322
  Receipt Date: 20110308
  Transmission Date: 20110831
  Serious: Yes (Death)
  Sender: FDA-Public Use
  Company Number: GB-MYLANLABS-2011S1004824

PATIENT
  Age: 81 Year
  Sex: Male

DRUGS (3)
  1. FUSIDATE SODIUM [Interacting]
     Indication: OSTEOMYELITIS
     Route: 065
  2. SIMVASTATIN [Suspect]
     Route: 065
  3. FLOXACILLIN SODIUM [Concomitant]
     Indication: OSTEOMYELITIS
     Route: 065

REACTIONS (2)
  - DRUG INTERACTION [None]
  - RHABDOMYOLYSIS [None]
